FAERS Safety Report 8799913 (Version 2)
Quarter: 2013Q4

REPORT INFORMATION
  Report Type: Spontaneous
  Country: JP (occurrence: JP)
  Receive Date: 20120919
  Receipt Date: 20131031
  Transmission Date: 20140711
  Serious: Yes (Hospitalization, Other)
  Sender: FDA-Public Use
  Company Number: JP-009507513-1203USA02079

PATIENT
  Age: 79 Year
  Sex: Female

DRUGS (6)
  1. FOSAMAC TABLETS 35MG [Suspect]
     Route: 048
  2. OPALMON [Concomitant]
     Route: 048
  3. GLAKAY [Concomitant]
     Route: 048
  4. OSTELUC [Concomitant]
     Route: 048
  5. APLACE [Concomitant]
     Route: 048
  6. ONEALFA [Concomitant]
     Route: 048

REACTIONS (1)
  - Femur fracture [Not Recovered/Not Resolved]
